FAERS Safety Report 16726004 (Version 3)
Quarter: 2019Q3

REPORT INFORMATION
  Report Type: Spontaneous
  Country: US (occurrence: US)
  Receive Date: 20190821
  Receipt Date: 20190930
  Transmission Date: 20191005
  Serious: Yes (Other)
  Sender: FDA-Public Use
  Company Number: US-CORCEPT THERAPEUTICS INC.-US-2019CRT000402

PATIENT
  Age: 63 Year
  Sex: Female

DRUGS (14)
  1. IBUPROFEN. [Concomitant]
     Active Substance: IBUPROFEN
     Indication: PRODUCT USED FOR UNKNOWN INDICATION
     Dosage: UNK
  2. METFORMIN [Concomitant]
     Active Substance: METFORMIN HYDROCHLORIDE
     Indication: PRODUCT USED FOR UNKNOWN INDICATION
     Dosage: UNK
  3. SPIRIN [Concomitant]
     Indication: PRODUCT USED FOR UNKNOWN INDICATION
     Dosage: UNK
  4. TRESIBA [Concomitant]
     Active Substance: INSULIN DEGLUDEC
     Indication: PRODUCT USED FOR UNKNOWN INDICATION
     Dosage: UNK
  5. BENADRYL [Concomitant]
     Active Substance: DIPHENHYDRAMINE HYDROCHLORIDE
     Indication: PRODUCT USED FOR UNKNOWN INDICATION
     Dosage: UNK
  6. JARDIANCE [Concomitant]
     Active Substance: EMPAGLIFLOZIN
     Indication: PRODUCT USED FOR UNKNOWN INDICATION
     Dosage: UNK
  7. KORLYM [Suspect]
     Active Substance: MIFEPRISTONE
     Dosage: 600 MG, QD
     Route: 048
     Dates: start: 20190412, end: 20190813
  8. NYSTATIN. [Concomitant]
     Active Substance: NYSTATIN
     Indication: PRODUCT USED FOR UNKNOWN INDICATION
     Dosage: UNK
  9. LEVOTHYROXINE. [Concomitant]
     Active Substance: LEVOTHYROXINE
     Indication: PRODUCT USED FOR UNKNOWN INDICATION
     Dosage: UNK
  10. KORLYM [Suspect]
     Active Substance: MIFEPRISTONE
     Indication: PITUITARY-DEPENDENT CUSHING^S SYNDROME
     Dosage: 300 MG, QD
     Route: 048
     Dates: start: 20190331, end: 20190411
  11. KORLYM [Suspect]
     Active Substance: MIFEPRISTONE
     Dosage: UNK
     Dates: start: 201908
  12. GABAPENTIN. [Concomitant]
     Active Substance: GABAPENTIN
     Indication: PRODUCT USED FOR UNKNOWN INDICATION
     Dosage: UNK
  13. LEVOTHYROXINE. [Concomitant]
     Active Substance: LEVOTHYROXINE
     Dosage: 250 MCG QD
     Dates: start: 2019
  14. OZEMPIC [Concomitant]
     Active Substance: SEMAGLUTIDE
     Indication: PRODUCT USED FOR UNKNOWN INDICATION
     Dosage: UNK

REACTIONS (28)
  - Blood potassium abnormal [Recovered/Resolved]
  - Psoriasis [Unknown]
  - Gait disturbance [Recovered/Resolved]
  - Malaise [Unknown]
  - Fatigue [Recovering/Resolving]
  - Foot fracture [Unknown]
  - Dizziness [Unknown]
  - Hypertension [Recovering/Resolving]
  - Influenza [Recovered/Resolved]
  - Palpitations [Recovered/Resolved]
  - Psoriatic arthropathy [Unknown]
  - Blood thyroid stimulating hormone increased [Unknown]
  - Migraine [Unknown]
  - Dysuria [Recovered/Resolved]
  - Abdominal pain upper [Recovered/Resolved]
  - Uterine polyp [Unknown]
  - Urinary tract infection [Recovered/Resolved]
  - Pyrexia [Recovered/Resolved]
  - Tremor [Recovered/Resolved]
  - Headache [Recovering/Resolving]
  - Peripheral swelling [Recovered/Resolved]
  - Blood pressure increased [Unknown]
  - Nausea [Recovering/Resolving]
  - Vaginal haemorrhage [Recovered/Resolved]
  - Endometrial thickening [Unknown]
  - Hyperhidrosis [Recovered/Resolved]
  - Blood urine present [Unknown]
  - Pain [Recovering/Resolving]

NARRATIVE: CASE EVENT DATE: 2019
